FAERS Safety Report 11936355 (Version 2)
Quarter: 2016Q1

REPORT INFORMATION
  Report Type: Spontaneous
  Country: US (occurrence: US)
  Receive Date: 20160121
  Receipt Date: 20160217
  Transmission Date: 20160526
  Serious: No
  Sender: FDA-Public Use
  Company Number: US-PFIZER INC-2016006900

PATIENT
  Age: 85 Year
  Sex: Female

DRUGS (1)
  1. LATANOPROST. [Suspect]
     Active Substance: LATANOPROST
     Dosage: 1 DROP BOTH EYES EVERY EVENING
     Route: 031
     Dates: start: 201505

REACTIONS (2)
  - Poor quality drug administered [Unknown]
  - Product quality issue [Unknown]
